FAERS Safety Report 6061910-5 (Version None)
Quarter: 2009Q1

REPORT INFORMATION
  Report Type: 
  Country: None (occurrence: None)
  Receive Date: 20090202
  Receipt Date: 20090122
  Transmission Date: 20090719
  Serious: Yes (Other)
  Sender: FDA-Public Use
  Company Number: PHEH2009US01026

PATIENT
  Sex: Female

DRUGS (6)
  1. RECLAST [Suspect]
     Dosage: UNK, UNK
  2. METFORMIN [Concomitant]
     Dosage: UNK, UNK
  3. LEVOXYL [Concomitant]
     Dosage: UNK, UNK
  4. MULTI-VITAMINS [Concomitant]
  5. CALCIUM [Concomitant]
  6. VITAMIN D [Concomitant]

REACTIONS (6)
  - BACK PAIN [None]
  - HAEMATOCHEZIA [None]
  - HAEMATURIA [None]
  - MYALGIA [None]
  - PAIN IN EXTREMITY [None]
  - PYREXIA [None]
